FAERS Safety Report 13440617 (Version 1)
Quarter: 2017Q2

REPORT INFORMATION
  Report Type: Spontaneous
  Country: US (occurrence: US)
  Receive Date: 20170413
  Receipt Date: 20170413
  Transmission Date: 20170830
  Serious: Yes (Hospitalization, Disabling, Other)
  Sender: FDA-Public Use
  Company Number: US-ZYDUS-014566

PATIENT
  Age: 49 Year
  Sex: Male

DRUGS (1)
  1. FLUCONAZOLE. [Suspect]
     Active Substance: FLUCONAZOLE
     Indication: FUNGAL INFECTION
     Dosage: SUSPECTED FUNGAL INFECTION OF AXILLAE
     Route: 065

REACTIONS (3)
  - Eye disorder [Recovered/Resolved with Sequelae]
  - Toxic epidermal necrolysis [Unknown]
  - Rash [Unknown]
